FAERS Safety Report 21222953 (Version 1)
Quarter: 2022Q3

REPORT INFORMATION
  Report Type: Spontaneous
  Country: TH (occurrence: TH)
  Receive Date: 20220817
  Receipt Date: 20220817
  Transmission Date: 20221027
  Serious: Yes (Hospitalization, Other)
  Sender: FDA-Public Use
  Company Number: TH-ORGANON-O2208THA001100

PATIENT
  Age: 9 Month
  Sex: Male

DRUGS (6)
  1. SINGULAIR [Suspect]
     Active Substance: MONTELUKAST SODIUM
     Indication: Bronchial hyperreactivity
     Dosage: 4 MILLIGRAM, QD; 1 SACHET PER DAY
     Route: 048
     Dates: start: 201812, end: 20200121
  2. SINGULAIR [Suspect]
     Active Substance: MONTELUKAST SODIUM
     Dosage: 4 MILLIGRAM, QD; 1 SACHET PER DAY|
     Route: 048
     Dates: start: 20200218
  3. SINGULAIR [Suspect]
     Active Substance: MONTELUKAST SODIUM
     Dosage: STARTED FEW DOSES AT THE AGE OF 9 MONTHS
     Route: 048
     Dates: start: 201807
  4. MONTELUKAST SODIUM [Suspect]
     Active Substance: MONTELUKAST SODIUM
     Indication: Bronchial hyperreactivity
     Dosage: 5 MILLIGRAM, QD; 0.5  TABLET
     Route: 048
     Dates: start: 20200121, end: 20200217
  5. BUDESONIDE [Concomitant]
     Active Substance: BUDESONIDE
     Dosage: UNK
  6. FLUTICASONE PROPIONATE\SALMETEROL XINAFOATE [Concomitant]
     Active Substance: FLUTICASONE PROPIONATE\SALMETEROL XINAFOATE
     Indication: Bronchial hyperreactivity
     Dosage: 1 PUFF DAILY VIA NEBULIZER (SALMETEROL 0.5 MG AND FLUTICASONE 0.25 MG)/QD
     Dates: start: 201808

REACTIONS (2)
  - Apathy [Recovered/Resolved]
  - Product use in unapproved indication [Unknown]

NARRATIVE: CASE EVENT DATE: 20180701
